FAERS Safety Report 6568016-7 (Version None)
Quarter: 2010Q1

REPORT INFORMATION
  Report Type: 
  Country: None (occurrence: None)
  Receive Date: 20100203
  Receipt Date: 20100122
  Transmission Date: 20100710
  Serious: Yes (Other)
  Sender: FDA-Public Use
  Company Number: US-PFIZER INC-2009299088

PATIENT
  Sex: Female
  Weight: 59.864 kg

DRUGS (6)
  1. AROMASIN [Suspect]
     Indication: BREAST CANCER
     Dosage: 25 MG, 1X/DAY
     Route: 048
     Dates: start: 20050101
  2. TOPAMAX [Suspect]
     Indication: NEUROPATHY PERIPHERAL
     Dosage: 25 MG, 1X/DAY
     Route: 048
     Dates: start: 20091113
  3. PRILOSEC [Concomitant]
     Indication: HIATUS HERNIA
     Dosage: 20.6 MG, 1X/DAY
     Route: 048
  4. PRILOSEC [Concomitant]
     Indication: REFLUX GASTRITIS
  5. CALTRATE [Concomitant]
     Indication: OSTEOPENIA
     Dosage: UNK
     Route: 048
  6. VITAMIN D [Concomitant]
     Indication: MINERAL SUPPLEMENTATION
     Dosage: 1000 MG, 1X/DAY
     Route: 048

REACTIONS (5)
  - BLOOD PRESSURE INCREASED [None]
  - CHEST DISCOMFORT [None]
  - GLUCOSE TOLERANCE IMPAIRED [None]
  - NEUROPATHY PERIPHERAL [None]
  - PALPITATIONS [None]
